FAERS Safety Report 24410411 (Version 1)
Quarter: 2024Q4

REPORT INFORMATION
  Report Type: Spontaneous
  Country: ES (occurrence: ES)
  Receive Date: 20241008
  Receipt Date: 20241008
  Transmission Date: 20250115
  Serious: Yes (Other)
  Sender: RANBAXY
  Company Number: ES-ASTELLAS-2024US021144

PATIENT
  Sex: Female

DRUGS (1)
  1. TAMSULOSIN [Suspect]
     Active Substance: TAMSULOSIN
     Indication: Urinary tract disorder
     Dosage: UNK
     Route: 065

REACTIONS (4)
  - Haematuria [Unknown]
  - Off label use [Unknown]
  - Product use issue [Unknown]
  - Renal colic [Unknown]
